FAERS Safety Report 6658825-8 (Version None)
Quarter: 2010Q1

REPORT INFORMATION
  Report Type: 
  Country: None (occurrence: None)
  Receive Date: 20100330
  Receipt Date: 20100325
  Transmission Date: 20100710
  Serious: Yes (Hospitalization)
  Sender: FDA-Public Use
  Company Number: US-ABBOTT-10P-163-0630819-00

PATIENT
  Sex: Male
  Weight: 88.53 kg

DRUGS (5)
  1. HUMIRA [Suspect]
     Indication: RHEUMATOID ARTHRITIS
     Route: 058
     Dates: start: 20091201
  2. UNKNOWN HIGH BLOOD PRESSURE MEDICATION [Concomitant]
     Indication: HYPERTENSION
     Route: 048
  3. VALIUM [Concomitant]
     Indication: SEDATIVE THERAPY
     Route: 048
  4. ARICEPT [Concomitant]
     Indication: DEMENTIA
     Route: 048
  5. UNKNOWN PARKINSON'S MEDICATION [Concomitant]
     Indication: PARKINSON'S DISEASE
     Route: 048

REACTIONS (3)
  - CEREBROVASCULAR ACCIDENT [None]
  - MALAISE [None]
  - PROTEIN TOTAL ABNORMAL [None]
